FAERS Safety Report 8873056 (Version 1)
Quarter: 2012Q4

REPORT INFORMATION
  Report Type: 
  Country: DE (occurrence: DE)
  Receive Date: 20121030
  Receipt Date: 20121030
  Transmission Date: 20130627
  Serious: Yes (Other)
  Sender: FDA-Public Use
  Company Number: DE-B.I. PHARMACEUTICALS,INC./RIDGEFIELD-2012-EU-05335GD

PATIENT
  Sex: Female

DRUGS (1)
  1. SIFROL [Suspect]
     Indication: RESTLESS LEGS SYNDROME
     Dosage: 0.18 mg

REACTIONS (1)
  - Gestational diabetes [Unknown]
